FAERS Safety Report 4399295-2 (Version None)
Quarter: 2004Q3

REPORT INFORMATION
  Report Type: 
  Country: None (occurrence: None)
  Receive Date: 20040712
  Receipt Date: 20040630
  Transmission Date: 20050211
  Serious: Yes (Disabling, Other)
  Sender: FDA-Public Use
  Company Number: 2004044330

PATIENT
  Age: 45 Year
  Sex: Male
  Weight: 77.1115 kg

DRUGS (5)
  1. NEURONTIN [Suspect]
     Indication: NEUROPATHY PERIPHERAL
     Dosage: 300 MG (300 MG, 1 IN 1 D), ORAL
     Route: 048
     Dates: start: 20040601
  2. ROSIGLITAZONE MALEATE [Concomitant]
  3. GLIMEPIRIDE [Concomitant]
  4. METFORMIN HCL [Concomitant]
  5. LISINOPRIL [Concomitant]

REACTIONS (4)
  - LUNG INFECTION PSEUDOMONAL [None]
  - RETINAL OEDEMA [None]
  - VISION BLURRED [None]
  - VISUAL ACUITY REDUCED [None]
